FAERS Safety Report 12854240 (Version 3)
Quarter: 2017Q2

REPORT INFORMATION
  Report Type: Spontaneous
  Country: US (occurrence: US)
  Receive Date: 20161017
  Receipt Date: 20170629
  Transmission Date: 20170830
  Serious: Yes (Other)
  Sender: FDA-Public Use
  Company Number: US-PFIZER INC-2016480441

PATIENT
  Age: 70 Year
  Sex: Female

DRUGS (1)
  1. XELJANZ [Suspect]
     Active Substance: TOFACITINIB CITRATE
     Indication: RHEUMATOID ARTHRITIS
     Dosage: 5 MG, UNK

REACTIONS (19)
  - Respiratory tract infection [Unknown]
  - Blindness [Unknown]
  - Pain [Not Recovered/Not Resolved]
  - Swelling [Not Recovered/Not Resolved]
  - Seasonal allergy [Unknown]
  - Synovitis [Unknown]
  - Glaucoma [Unknown]
  - Joint stiffness [Not Recovered/Not Resolved]
  - Extremity contracture [Unknown]
  - Arthralgia [Unknown]
  - Eye pain [Unknown]
  - Eye irritation [Unknown]
  - Musculoskeletal stiffness [Unknown]
  - Intraocular pressure increased [Unknown]
  - Fatigue [Unknown]
  - Cataract [Unknown]
  - Dry eye [Unknown]
  - Cough [Unknown]
  - Dysphonia [Unknown]
